FAERS Safety Report 5939678-X (Version None)
Quarter: 2008Q4

REPORT INFORMATION
  Report Type: 
  Country: None (occurrence: None)
  Receive Date: 20081030
  Receipt Date: 20081030
  Transmission Date: 20090506
  Serious: No
  Sender: FDA-Public Use
  Company Number: None

PATIENT
  Age: 54 Year
  Sex: Female
  Weight: 74.8435 kg

DRUGS (1)
  1. NITROFURANTOIN [Suspect]
     Indication: PROPHYLAXIS URINARY TRACT INFECTION
     Dosage: 100MG PO
     Route: 048

REACTIONS (2)
  - LUNG INFILTRATION [None]
  - RESPIRATORY TRACT INFECTION [None]
